FAERS Safety Report 7751979-1 (Version None)
Quarter: 2011Q3

REPORT INFORMATION
  Report Type: 
  Country: None (occurrence: None)
  Receive Date: 20110913
  Receipt Date: 20110830
  Transmission Date: 20111222
  Serious: Yes (Hospitalization, Other)
  Sender: FDA-Public Use
  Company Number: AUR-APL-2011-04898

PATIENT
  Age: 62 Year
  Sex: Male

DRUGS (4)
  1. PIPERACILLIN AND TAZOBACTAM [Suspect]
     Indication: PNEUMONIA
     Dosage: (4.5 GM),INTRAVENOUS
     Route: 042
  2. FUROSEMIDE [Concomitant]
  3. METHYLPREDNISOLONE [Concomitant]
  4. THEOPHYLLINE [Concomitant]

REACTIONS (16)
  - MYOCARDIAL ISCHAEMIA [None]
  - REFUSAL OF TREATMENT BY PATIENT [None]
  - KOUNIS SYNDROME [None]
  - PRURITUS [None]
  - MALAISE [None]
  - TREMOR [None]
  - CHEST PAIN [None]
  - ANAPHYLACTIC REACTION [None]
  - DYSPNOEA [None]
  - HYPOTENSION [None]
  - HYPERHIDROSIS [None]
  - EXTRASYSTOLES [None]
  - RASH ERYTHEMATOUS [None]
  - BLOOD PRESSURE DECREASED [None]
  - ABDOMINAL PAIN [None]
  - TACHYCARDIA [None]
